FAERS Safety Report 19231585 (Version 4)
Quarter: 2021Q2

REPORT INFORMATION
  Report Type: Report from Study
  Country: FR (occurrence: FR)
  Receive Date: 20210507
  Receipt Date: 20210524
  Transmission Date: 20210717
  Serious: Yes (Life-Threatening)
  Sender: FDA-Public Use
  Company Number: FR-PFIZER INC-2021498222

PATIENT
  Weight: 56.3 kg

DRUGS (18)
  1. MORPHINE [Concomitant]
     Active Substance: MORPHINE
     Dosage: 1.0 UNITS, 1X/DAY (IN.D/QUOTID/O.D.)
     Dates: start: 20210414, end: 20210423
  2. GEMTUZUMAB OZOGAMICIN [Suspect]
     Active Substance: GEMTUZUMAB OZOGAMICIN
     Indication: ACUTE MYELOID LEUKAEMIA
     Dosage: 4.6 MG (OTHER)
     Route: 042
     Dates: start: 20210409, end: 20210415
  3. CONTALAX [Concomitant]
     Active Substance: BISACODYL
     Dosage: 5 MG, 1X/DAY (IN.D/QUOTID/O.D.)
     Dates: start: 20210417, end: 20210426
  4. LIDOCAINE. [Concomitant]
     Active Substance: LIDOCAINE
     Dosage: 1.0 UNITS, 1X/DAY ( (IN.D/QUOTID/O.D.))
     Dates: start: 20210420, end: 20210425
  5. MITOXANTRONE [Suspect]
     Active Substance: MITOXANTRONE HYDROCHLORIDE
     Indication: ACUTE MYELOID LEUKAEMIA
     Dosage: 12 MG/M2, 1X/DAY
     Route: 042
     Dates: start: 20210406, end: 20210409
  6. OXYCODONE [Concomitant]
     Active Substance: OXYCODONE
     Dosage: 1.0 UNITS, 3X/DAY (T.D/T.I.D/T.D.S)
     Dates: start: 20210425, end: 20210427
  7. SMOFLIPID [Concomitant]
     Active Substance: FISH OIL\MEDIUM-CHAIN TRIGLYCERIDES\OLIVE OIL\SOYBEAN OIL
     Dosage: 50 G, 1X/DAY  (IN.D/QUOTID/O.D.)
     Dates: start: 20210422, end: 20210428
  8. CYTARABINE. [Suspect]
     Active Substance: CYTARABINE
     Indication: ACUTE MYELOID LEUKAEMIA
     Dosage: 160 MG, 2X/DAY (B.D/B.I.D)
     Route: 042
     Dates: start: 20210406, end: 20210415
  9. LARGACTIL [CHLORPROMAZINE] [Concomitant]
     Active Substance: CHLORPROMAZINE
     Dosage: 12.5 MG, 2X/DAY (B.D/B.I.D)
     Dates: start: 20210414, end: 20210427
  10. ACUPAN [Concomitant]
     Active Substance: NEFOPAM HYDROCHLORIDE
     Dosage: 30 MG, 2X/DAY (B.D/B.I.D)
     Dates: start: 20210414, end: 20210422
  11. ALIZAPRIDE [Concomitant]
     Active Substance: ALIZAPRIDE
     Dosage: 50 MG 1X/DAY (IN.D/QUOTID/O.D.)
     Dates: start: 20210425, end: 20210425
  12. EDUCTYL [Concomitant]
     Active Substance: POTASSIUM BITARTRATE\SODIUM BICARBONATE
     Dosage: 1.0 UNITS, 1X/DAY ( (IN.D/QUOTID/O.D.))
     Dates: start: 20210414, end: 20210426
  13. METHYLPREDNISOLONE. [Concomitant]
     Active Substance: METHYLPREDNISOLONE
     Dosage: 40 MG, 1X/DAY  (IN.D/QUOTID/O.D.)
     Dates: start: 20210425, end: 20210427
  14. ONDANSETRON [Concomitant]
     Active Substance: ONDANSETRON
     Dosage: 8.0 MG, 1X/DAY  (IN.D/QUOTID/O.D.)
     Dates: start: 20210414, end: 20210427
  15. HYDROXYZINE [Concomitant]
     Active Substance: HYDROXYZINE HYDROCHLORIDE
     Dosage: 25.0 MG, 1X/DAY  (IN.D/QUOTID/O.D.)
     Dates: start: 20210414, end: 20210427
  16. PARACETAMOL [Concomitant]
     Active Substance: ACETAMINOPHEN
     Dosage: 1 G, 4X/DAY (QD/Q.I.D)
     Dates: start: 20210414, end: 20210428
  17. CASPOFUNGINE [Concomitant]
     Active Substance: CASPOFUNGIN
     Dosage: 70.0 MG 1X/DAY (IN.D/QUOTID/O.D.)
     Dates: start: 20210414, end: 20210428
  18. HYDROCORTISONE. [Concomitant]
     Active Substance: HYDROCORTISONE
     Dosage: 50 MG, 1X/DAY  (IN.D/QUOTID/O.D.)
     Dates: start: 20210424, end: 20210425

REACTIONS (6)
  - Haematuria [Not Recovered/Not Resolved]
  - Confusional state [Not Recovered/Not Resolved]
  - Depressed level of consciousness [Not Recovered/Not Resolved]
  - Acute respiratory failure [Not Recovered/Not Resolved]
  - Cystitis [Not Recovered/Not Resolved]
  - Hyperammonaemia [Not Recovered/Not Resolved]

NARRATIVE: CASE EVENT DATE: 20210426
